FAERS Safety Report 8965639 (Version 1)
Quarter: 2012Q4

REPORT INFORMATION
  Report Type: Spontaneous
  Country: GB (occurrence: None)
  Receive Date: 20121205
  Receipt Date: 20121205
  Transmission Date: 20130627
  Serious: Yes (Hospitalization)
  Sender: FDA-Public Use
  Company Number: AUR-APL-2012-05068

PATIENT
  Age: 61 Year
  Sex: Male

DRUGS (33)
  1. RAMIPRIL (RAMIPRIL) [Suspect]
     Indication: DRUG USE FOR UNKNOWN INDICATION
     Dosage: (2.5 mg,2 in 1 D)
     Route: 048
     Dates: start: 20101103, end: 20111026
  2. RAMIPRIL (RAMIPRIL) [Suspect]
     Indication: DRUG USE FOR UNKNOWN INDICATION
     Route: 048
     Dates: start: 20111026, end: 20120705
  3. RAMIPRIL (RAMIPRIL) [Suspect]
     Indication: DRUG USE FOR UNKNOWN INDICATION
     Route: 048
     Dates: start: 20111026, end: 20120705
  4. RAMIPRIL (RAMIPRIL) [Suspect]
     Indication: DRUG USE FOR UNKNOWN INDICATION
     Dosage: (2.5 mg,2 in 1 D)
     Route: 048
     Dates: start: 20120706, end: 20120727
  5. RAMIPRIL (RAMIPRIL) [Suspect]
     Indication: DRUG USE FOR UNKNOWN INDICATION
     Route: 048
     Dates: start: 20120801
  6. RAMIPRIL (RAMIPRIL) [Suspect]
     Indication: DRUG USE FOR UNKNOWN INDICATION
  7. RAMIPRIL (RAMIPRIL) [Suspect]
     Indication: DRUG USE FOR UNKNOWN INDICATION
  8. BURINEX [Suspect]
     Indication: DRUG USE FOR UNKNOWN INDICATION
     Route: 048
     Dates: start: 20101102, end: 20110309
  9. BURINEX [Suspect]
     Indication: DRUG USE FOR UNKNOWN INDICATION
     Route: 048
     Dates: start: 20120604, end: 20120716
  10. BURINEX [Suspect]
     Indication: DRUG USE FOR UNKNOWN INDICATION
     Dosage: (1 mg,2 in 1 D)
     Route: 048
     Dates: start: 20120716, end: 20120727
  11. BURINEX [Suspect]
     Indication: DRUG USE FOR UNKNOWN INDICATION
     Route: 048
     Dates: start: 20120730
  12. BURINEX [Suspect]
     Indication: DRUG USE FOR UNKNOWN INDICATION
  13. BURINEX [Suspect]
     Indication: DRUG USE FOR UNKNOWN INDICATION
     Route: 048
     Dates: start: 20120730
  14. ALEGLITAZAR [Suspect]
     Indication: CARDIOVASCULAR EVENT PROPHYLAXIS
     Route: 048
     Dates: start: 20101122
  15. AMILORIDE (AMILORIDE) [Concomitant]
  16. ASPIRIN (ACETYLSALICYLIC ACID) [Concomitant]
  17. BECLOMETHASONE (BECLOMETASONE DIPROPIONATE) [Concomitant]
  18. BENDROFLUMETHIAZIDE (BENDROFLUMETHIAZIDE) [Concomitant]
  19. CLOPIDOGREL (CLOPIDOGREL) [Concomitant]
  20. CYCLIZINE (CYCLIZINE) [Concomitant]
  21. DIAZEPAM (DIAZEPAM) [Concomitant]
  22. EPLERENONE (EPLERENONE) [Concomitant]
  23. FERROUS SULPHATE (FERROUS SULFATE) [Concomitant]
  24. FRUSEMIDE (FUROSEMIDE) [Concomitant]
  25. FUSIDIC ACID (FUSIDIC ACID) [Concomitant]
  26. INSPRA (MONTELUKAST SODIUM) [Concomitant]
  27. LANSOPRAZOLE (LANSOPRAZOLE) [Concomitant]
  28. LEVEMIR (INSULIN DETEMIR) [Concomitant]
  29. NORTRIPTYLINE HYDROCHLORIDE (NORTRIPTYLINE HYDROCHLORIDE) [Concomitant]
  30. NOVORAPID (INSULIN ASPART) [Concomitant]
  31. PARACETAMOL (PARACETAMOL) [Concomitant]
  32. PREGABALIN (PREGABALIN) [Concomitant]
  33. ROSUVASTATIN (ROSUVASTATIN) [Concomitant]

REACTIONS (2)
  - Fall [None]
  - Dizziness [None]
